FAERS Safety Report 20145367 (Version 1)
Quarter: 2021Q4

REPORT INFORMATION
  Report Type: Report from Study
  Country: DO (occurrence: DO)
  Receive Date: 20211203
  Receipt Date: 20211203
  Transmission Date: 20220304
  Serious: Yes (Death)
  Sender: FDA-Public Use
  Company Number: DO-JNJFOC-20211203084

PATIENT
  Sex: Female

DRUGS (1)
  1. IMBRUVICA [Suspect]
     Active Substance: IBRUTINIB
     Indication: Chronic lymphocytic leukaemia
     Route: 048

REACTIONS (1)
  - Death [Fatal]
